FAERS Safety Report 6358783-X (Version None)
Quarter: 2009Q3

REPORT INFORMATION
  Report Type: 
  Country: None (occurrence: None)
  Receive Date: 20090916
  Receipt Date: 20090723
  Transmission Date: 20100115
  Serious: No
  Sender: FDA-Public Use
  Company Number: US-ABBOTT-09P-163-0587769-00

PATIENT
  Age: 59 Year
  Sex: Male

DRUGS (5)
  1. TRILIPIX [Suspect]
     Indication: BLOOD TRIGLYCERIDES INCREASED
     Route: 048
  2. TRILIPIX [Suspect]
     Indication: HIGH DENSITY LIPOPROTEIN DECREASED
  3. CRESTOR [Concomitant]
     Indication: BLOOD CHOLESTEROL INCREASED
     Route: 048
  4. LISINOPRIL [Concomitant]
     Indication: HYPERTENSION
     Route: 048
  5. METOPROLOL TARTRATE [Concomitant]
     Indication: HYPERTENSION
     Route: 048

REACTIONS (2)
  - ABDOMINAL PAIN [None]
  - MUSCLE SPASMS [None]
